FAERS Safety Report 9376273 (Version 2)
Quarter: 2013Q3

REPORT INFORMATION
  Report Type: Spontaneous
  Country: BA (occurrence: BA)
  Receive Date: 20130701
  Receipt Date: 20130718
  Transmission Date: 20140515
  Serious: Yes (Death)
  Sender: FDA-Public Use
  Company Number: BA-JNJFOC-20130615465

PATIENT
  Sex: Male
  Weight: 115 kg

DRUGS (5)
  1. RISPOLEPT CONSTA [Suspect]
     Indication: PSYCHOTIC DISORDER
     Route: 030
     Dates: start: 20130301
  2. BIPERIDEN HYDROCHLORIDE [Concomitant]
     Route: 048
  3. LEPONEX [Concomitant]
     Route: 048
  4. BROMAZEPAM [Concomitant]
     Route: 048
  5. BROMAZEPAM [Concomitant]
     Route: 048

REACTIONS (1)
  - Completed suicide [Fatal]
